FAERS Safety Report 5888490-9 (Version None)
Quarter: 2008Q3

REPORT INFORMATION
  Report Type: 
  Country: None (occurrence: None)
  Receive Date: 20080917
  Receipt Date: 20080917
  Transmission Date: 20090109
  Serious: Yes (Other)
  Sender: FDA-Public Use
  Company Number: None

PATIENT
  Sex: Female
  Weight: 58.9676 kg

DRUGS (1)
  1. SOTRET [Suspect]
     Indication: ACNE
     Dosage: 60 MG, 90 MG QAM, QPM PO
     Route: 048
     Dates: start: 20071226

REACTIONS (3)
  - ASTHMA EXERCISE INDUCED [None]
  - EAR DISCOMFORT [None]
  - NO THERAPEUTIC RESPONSE [None]
